FAERS Safety Report 6267962-1 (Version None)
Quarter: 2009Q3

REPORT INFORMATION
  Report Type: 
  Country: None (occurrence: None)
  Receive Date: 20090713
  Receipt Date: 20090630
  Transmission Date: 20100115
  Serious: Yes (Hospitalization)
  Sender: FDA-Public Use
  Company Number: 2009-190406-NL

PATIENT
  Age: 31 Year
  Sex: Female
  Weight: 54.4 kg

DRUGS (7)
  1. NUVARING [Suspect]
     Indication: CONTRACEPTION
     Dosage: NI, 3 WEEKS A MONTH
     Dates: start: 20060601, end: 20061001
  2. SYNTHROID [Concomitant]
  3. PERCOCET-5 [Concomitant]
  4. PHENEGAN ^AVENTIS PHARMA^ [Concomitant]
  5. LEXAPRO NI [Concomitant]
  6. IMITREX ^CERENEX^ [Concomitant]
  7. CARISOPRODOL [Concomitant]

REACTIONS (7)
  - ALOPECIA [None]
  - ANTIPHOSPHOLIPID ANTIBODIES POSITIVE [None]
  - ATELECTASIS [None]
  - FATIGUE [None]
  - GOITRE [None]
  - PLEURISY [None]
  - PULMONARY EMBOLISM [None]
